FAERS Safety Report 13928140 (Version 1)
Quarter: 2017Q3

REPORT INFORMATION
  Report Type: Spontaneous
  Country: US (occurrence: None)
  Receive Date: 20170831
  Receipt Date: 20170831
  Transmission Date: 20171127
  Serious: Yes (Hospitalization)
  Sender: FDA-Public Use
  Company Number: None

PATIENT
  Age: 18 Year
  Sex: Female

DRUGS (16)
  1. MULTIVITAMIN [Concomitant]
     Active Substance: VITAMINS
  2. PRAVASTATIN. [Concomitant]
     Active Substance: PRAVASTATIN
  3. RAPAMUNE [Suspect]
     Active Substance: SIROLIMUS
     Indication: HYPERCHOLESTEROLAEMIA
     Route: 048
     Dates: start: 20170112
  4. FERROUS SULFATE. [Concomitant]
     Active Substance: FERROUS SULFATE
  5. MONONESSA [Concomitant]
     Active Substance: ETHINYL ESTRADIOL\NORGESTIMATE
  6. FLUTICASONE. [Concomitant]
     Active Substance: FLUTICASONE
  7. VITAMIN D3 [Concomitant]
     Active Substance: CHOLECALCIFEROL
  8. RANITIDINE. [Concomitant]
     Active Substance: RANITIDINE
  9. VICTOZA [Concomitant]
     Active Substance: LIRAGLUTIDE
  10. NASAL SPRAY [Concomitant]
     Active Substance: UNSPECIFIED INGREDIENT
  11. ASPIRIN. [Concomitant]
     Active Substance: ASPIRIN
  12. RAPAMUNE [Suspect]
     Active Substance: SIROLIMUS
     Indication: HYPERCHOLESTEROLAEMIA
     Route: 048
     Dates: start: 20161205
  13. BIOTIN [Concomitant]
     Active Substance: BIOTIN
  14. PREDNISONE. [Concomitant]
     Active Substance: PREDNISONE
  15. BISOPROLOL [Concomitant]
     Active Substance: BISOPROLOL
  16. SPIRONOLACTONE. [Concomitant]
     Active Substance: SPIRONOLACTONE

REACTIONS (1)
  - Hospitalisation [None]

NARRATIVE: CASE EVENT DATE: 201708
